FAERS Safety Report 11217381 (Version 3)
Quarter: 2015Q3

REPORT INFORMATION
  Report Type: Spontaneous
  Country: US (occurrence: US)
  Receive Date: 20150625
  Receipt Date: 20150807
  Transmission Date: 20151125
  Serious: Yes (Other)
  Sender: FDA-Public Use
  Company Number: US-ROCHE-1598931

PATIENT
  Age: 12 Year
  Sex: Female
  Weight: 39.8 kg

DRUGS (9)
  1. PRED FORTE [Concomitant]
     Active Substance: PREDNISOLONE ACETATE
     Indication: UVEITIS
     Route: 065
  2. ACTEMRA [Suspect]
     Active Substance: TOCILIZUMAB
     Indication: UVEITIS
     Route: 042
  3. ACTEMRA [Suspect]
     Active Substance: TOCILIZUMAB
     Indication: JUVENILE IDIOPATHIC ARTHRITIS
     Dosage: TOTAL DOSE 300 MG
     Route: 042
     Dates: start: 20150608
  4. ACTEMRA [Suspect]
     Active Substance: TOCILIZUMAB
     Dosage: ONCE
     Route: 042
  5. FOLIC ACID. [Concomitant]
     Active Substance: FOLIC ACID
     Route: 048
     Dates: start: 20150128
  6. ACTEMRA [Suspect]
     Active Substance: TOCILIZUMAB
     Dosage: ONCE
     Route: 042
  7. ACTEMRA [Suspect]
     Active Substance: TOCILIZUMAB
     Dosage: ONCE
     Route: 042
     Dates: start: 20150803
  8. OTREXUP [Concomitant]
     Active Substance: METHOTREXATE
     Indication: JUVENILE IDIOPATHIC ARTHRITIS
     Route: 065
     Dates: start: 20150128
  9. OTREXUP [Concomitant]
     Active Substance: METHOTREXATE
     Indication: UVEITIS

REACTIONS (6)
  - Anxiety [Unknown]
  - Chest discomfort [Recovered/Resolved]
  - Panic attack [Recovered/Resolved]
  - Dyspnoea [Recovered/Resolved]
  - Cough [Recovered/Resolved]
  - Chest discomfort [Recovered/Resolved]

NARRATIVE: CASE EVENT DATE: 20150608
